FAERS Safety Report 13428293 (Version 1)
Quarter: 2017Q2

REPORT INFORMATION
  Report Type: Spontaneous
  Country: CN (occurrence: CN)
  Receive Date: 20170411
  Receipt Date: 20170411
  Transmission Date: 20170830
  Serious: Yes (Other)
  Sender: FDA-Public Use
  Company Number: CN-PFIZER INC-2017152498

PATIENT
  Age: 47 Year
  Sex: Female
  Weight: 56 kg

DRUGS (1)
  1. METHYLPREDNISOLONE SODIUM SUCCINATE. [Suspect]
     Active Substance: METHYLPREDNISOLONE SODIUM SUCCINATE
     Indication: WHEEZING
     Dosage: 40 MG IVGTT QD + 0.9% SODIUM CHLORIDE INJECTION 100 ML
     Route: 041
     Dates: start: 20170210, end: 20170211

REACTIONS (2)
  - Agitation [Recovering/Resolving]
  - Initial insomnia [Recovering/Resolving]

NARRATIVE: CASE EVENT DATE: 20170210
